FAERS Safety Report 5849024-8 (Version None)
Quarter: 2008Q3

REPORT INFORMATION
  Report Type: 
  Country: None (occurrence: None)
  Receive Date: 20080815
  Receipt Date: 20080418
  Transmission Date: 20090109
  Serious: Yes (Other)
  Sender: FDA-Public Use
  Company Number: 2008EU000881

PATIENT
  Age: 5 Year
  Sex: Male

DRUGS (1)
  1. TACROLIMUS [Suspect]
     Indication: GRAFT VERSUS HOST DISEASE
     Dosage: D

REACTIONS (1)
  - REVERSIBLE POSTERIOR LEUKOENCEPHALOPATHY SYNDROME [None]
